FAERS Safety Report 6905453-2 (Version None)
Quarter: 2010Q3

REPORT INFORMATION
  Report Type: 
  Country: None (occurrence: None)
  Receive Date: 20100804
  Receipt Date: 20100722
  Transmission Date: 20110219
  Serious: Yes (Other)
  Sender: FDA-Public Use
  Company Number: PHHY2010JP09087

PATIENT
  Sex: Male
  Weight: 61 kg

DRUGS (10)
  1. ALISKIREN ALI+TAB+HT [Suspect]
     Indication: HYPERTENSION
     Dosage: 150 MG DAILY
     Route: 048
     Dates: start: 20100127
  2. AMLODIPINE [Concomitant]
     Indication: HYPERTENSION
     Dosage: 5 MG
     Route: 048
     Dates: start: 20090908
  3. AMLODIPINE [Concomitant]
     Dosage: 10 MG
  4. EPLERENONE [Concomitant]
     Indication: HYPERTENSION
     Dosage: 50 MG
     Route: 048
     Dates: start: 20090821, end: 20100126
  5. DOXAZOSIN MESYLATE [Concomitant]
     Indication: HYPERTENSION
     Dosage: 2 MG
     Route: 048
     Dates: start: 20060901, end: 20100126
  6. ASPIRIN [Concomitant]
     Indication: INFARCTION
     Dosage: 100 MG
     Route: 048
     Dates: start: 20060929, end: 20100212
  7. CRESTOR [Concomitant]
     Dosage: 2.5 MG
     Route: 048
     Dates: start: 20081008
  8. BONALON [Concomitant]
     Dosage: 35 MG
     Route: 048
     Dates: start: 20081108
  9. URSO 250 [Concomitant]
     Dosage: 600 MG
     Route: 048
     Dates: start: 20091006
  10. DEPAS [Concomitant]
     Dosage: 0.5 MG
     Route: 048
     Dates: start: 20091214

REACTIONS (4)
  - BLOOD PRESSURE INADEQUATELY CONTROLLED [None]
  - CEREBELLAR HAEMANGIOMA [None]
  - CEREBELLAR HAEMORRHAGE [None]
  - DIZZINESS [None]
